FAERS Safety Report 4642134-2 (Version None)
Quarter: 2005Q2

REPORT INFORMATION
  Report Type: 
  Country: None (occurrence: None)
  Receive Date: 20050421
  Receipt Date: 20050407
  Transmission Date: 20051028
  Serious: Yes (Other)
  Sender: FDA-Public Use
  Company Number: 2005055587

PATIENT
  Age: 72 Year
  Sex: Male
  Weight: 77.1115 kg

DRUGS (3)
  1. NEOSPORIN [Suspect]
     Indication: ACNE
     Dosage: UNSPECIFIED AMT ABOVE EYE, TOPICAL
     Route: 061
     Dates: end: 20050404
  2. SERTRALINE HCL [Concomitant]
  3. LEVOTHYROXINE SODIUM [Concomitant]

REACTIONS (3)
  - DRUG HYPERSENSITIVITY [None]
  - NO REACTION ON PREVIOUS EXPOSURE TO DRUG [None]
  - THERAPY NON-RESPONDER [None]
